FAERS Safety Report 7170530-0 (Version None)
Quarter: 2010Q4

REPORT INFORMATION
  Report Type: 
  Country: None (occurrence: None)
  Receive Date: 20101217
  Receipt Date: 20101214
  Transmission Date: 20110411
  Serious: Yes (Death, Other)
  Sender: FDA-Public Use
  Company Number: PHHY2010JP09500

PATIENT
  Sex: Male
  Weight: 47 kg

DRUGS (9)
  1. ZOMETA [Suspect]
     Indication: METASTASES TO BONE
     Dosage: 4 MG
     Route: 041
     Dates: start: 20090717, end: 20100127
  2. NORVASC [Concomitant]
     Indication: HYPERTENSION
     Dosage: 5MG
     Dates: start: 20050303
  3. OMEPRAL [Concomitant]
     Indication: GASTRIC ULCER
     Dosage: 20MG
     Route: 048
     Dates: start: 20100113
  4. MUCOSTA [Concomitant]
     Indication: GASTRIC ULCER
     Dosage: 300MG
     Route: 048
     Dates: start: 20100113
  5. BLOPRESS [Concomitant]
     Indication: HYPERTENSION
     Dosage: 8MG
     Route: 048
     Dates: start: 20050303
  6. LIVACT [Concomitant]
     Indication: HEPATIC NEOPLASM MALIGNANT
     Dosage: 12.45G
     Route: 048
     Dates: start: 20091007
  7. LASIX [Concomitant]
     Indication: ASCITES
     Dosage: 20MG
     Route: 048
     Dates: start: 20091010
  8. ALDACTONE [Concomitant]
     Indication: ASCITES
     Dosage: 25MG
     Route: 048
     Dates: start: 20091010
  9. DUROTEP JANSSEN [Concomitant]
     Indication: CANCER PAIN
     Dosage: 4.2MG
     Route: 062
     Dates: start: 20091009

REACTIONS (10)
  - ASCITES [None]
  - CANCER PAIN [None]
  - GASTRIC ULCER [None]
  - IMPAIRED HEALING [None]
  - MALIGNANT NEOPLASM PROGRESSION [None]
  - OSTEITIS [None]
  - OSTEONECROSIS OF JAW [None]
  - PAIN IN JAW [None]
  - PURULENT DISCHARGE [None]
  - TOOTH EXTRACTION [None]
